FAERS Safety Report 9225273 (Version 2)
Quarter: 2013Q2

REPORT INFORMATION
  Report Type: Report from Study
  Country: DE (occurrence: DE)
  Receive Date: 20130411
  Receipt Date: 20130524
  Transmission Date: 20140414
  Serious: Yes (Other)
  Sender: FDA-Public Use
  Company Number: DE-ROCHE-1208728

PATIENT
  Sex: 0

DRUGS (2)
  1. ALTEPLASE [Suspect]
     Indication: PULMONARY EMBOLISM
     Dosage: 10  MG AS A BOLUS AND 90 MG AS A 2-H INFUSION, PATIENTS WEIGHING LESS THAN 65 KG RECEIVED 1.5 MG/KG
     Route: 042
  2. HEPARIN [Concomitant]
     Indication: PULMONARY EMBOLISM
     Dosage: 70 IU/KG BEFORE THROMBOLYSIS, FOLLOWED BY 15 IU/KG/H, STARTING IMMEDIATLY AFTER DRUG ADMINISTARATION
     Route: 042

REACTIONS (1)
  - Rash [Unknown]
